FAERS Safety Report 8829268 (Version 1)
Quarter: 2012Q4

REPORT INFORMATION
  Report Type: 
  Country: GB (occurrence: GB)
  Receive Date: 20121008
  Receipt Date: 20121008
  Transmission Date: 20130627
  Serious: Yes (Hospitalization, Other)
  Sender: FDA-Public Use
  Company Number: PHFR2012GB005285

PATIENT
  Age: 87 Year
  Sex: Female

DRUGS (11)
  1. DICLOFENAC [Suspect]
     Indication: ARTHRITIS
     Dosage: 1DF four times a day
     Dates: end: 20120909
  2. DIGOXIN [Concomitant]
  3. ATORVASTATIN [Concomitant]
  4. IBANDRONIC ACID [Concomitant]
  5. FUROSEMIDE [Concomitant]
  6. RAMIPRIL [Concomitant]
  7. LATANOPROST [Concomitant]
  8. TRIMETHOPRIM [Concomitant]
  9. ADCAL-D3 [Concomitant]
  10. EUMOVATE [Concomitant]
  11. WARFARIN [Concomitant]
     Indication: ATRIAL FIBRILLATION

REACTIONS (4)
  - Duodenal ulcer [Recovered/Resolved]
  - Upper gastrointestinal haemorrhage [Recovered/Resolved]
  - Haemoglobin decreased [Unknown]
  - Blood urea increased [Unknown]
